FAERS Safety Report 8081648-2 (Version None)
Quarter: 2012Q1

REPORT INFORMATION
  Report Type: 
  Country: None (occurrence: None)
  Receive Date: 20120130
  Receipt Date: 20120119
  Transmission Date: 20120608
  Serious: Yes (Hospitalization)
  Sender: FDA-Public Use
  Company Number: BR-ASTRAZENECA-2012SE04136

PATIENT
  Age: 65 Year
  Sex: Male
  Weight: 94 kg

DRUGS (15)
  1. CARDILOL [Concomitant]
     Dosage: BID
     Route: 048
     Dates: start: 20020101
  2. ALDACTONE [Concomitant]
     Route: 048
     Dates: start: 20020101
  3. RAZAPINA [Concomitant]
     Indication: DEPRESSION
     Route: 048
     Dates: start: 20080101
  4. UNKNOWN [Concomitant]
     Indication: HEADACHE
     Route: 048
     Dates: start: 20090101
  5. CRESTOR [Suspect]
     Indication: BLOOD TRIGLYCERIDES INCREASED
     Route: 048
     Dates: start: 20090101, end: 20111001
  6. CRESTOR [Suspect]
     Route: 048
     Dates: start: 20111001
  7. CYMBALTA [Concomitant]
     Route: 048
     Dates: start: 20080101
  8. LIPLESS [Concomitant]
     Route: 048
     Dates: start: 20080101
  9. COUMADIN [Concomitant]
     Route: 048
     Dates: start: 20020101
  10. METFORMIN HYDROCHLORIDE [Suspect]
     Indication: DIABETES MELLITUS
     Route: 048
     Dates: start: 20020101, end: 20120101
  11. NEXIUM [Suspect]
     Indication: ABDOMINAL PAIN UPPER
     Route: 048
     Dates: start: 20110101
  12. DIOVAN [Concomitant]
     Route: 048
     Dates: start: 20020101
  13. LITHIUM CARBONATE [Concomitant]
     Indication: HEADACHE
     Route: 048
     Dates: start: 20090101
  14. INSULIN [Suspect]
     Indication: DIABETES MELLITUS
     Route: 058
     Dates: start: 20070101
  15. ROCALTROL [Concomitant]
     Route: 048
     Dates: start: 20090101

REACTIONS (10)
  - MEMORY IMPAIRMENT [None]
  - DRUG EFFECT DECREASED [None]
  - ANXIETY [None]
  - ABDOMINAL DISTENSION [None]
  - INAPPROPRIATE SCHEDULE OF DRUG ADMINISTRATION [None]
  - DRUG PRESCRIBING ERROR [None]
  - BLOOD TRIGLYCERIDES INCREASED [None]
  - ABDOMINAL PAIN UPPER [None]
  - BLOOD GLUCOSE INCREASED [None]
  - HYPOGLYCAEMIA [None]
